FAERS Safety Report 9917529 (Version 1)
Quarter: 2014Q1

REPORT INFORMATION
  Report Type: Report from Study
  Country: CA (occurrence: CA)
  Receive Date: 20140221
  Receipt Date: 20140221
  Transmission Date: 20141002
  Serious: Yes (Hospitalization)
  Sender: FDA-Public Use
  Company Number: CA-JNJFOC-20140207977

PATIENT
  Age: 17 Year
  Sex: Male
  Weight: 66 kg

DRUGS (2)
  1. REMICADE [Suspect]
     Indication: CROHN^S DISEASE
     Route: 042
     Dates: start: 20131213, end: 20140110
  2. REMICADE [Suspect]
     Indication: CROHN^S DISEASE
     Dosage: WEEK 2, 6 AND ONCE EVERY 8 WEEKS
     Route: 042
     Dates: start: 20131204

REACTIONS (1)
  - Drug ineffective [Unknown]
